FAERS Safety Report 9072957 (Version 1)
Quarter: 2013Q1

REPORT INFORMATION
  Report Type: Report from Study
  Country: US (occurrence: US)
  Receive Date: 20130129
  Receipt Date: 20130129
  Transmission Date: 20140127
  Serious: No
  Sender: FDA-Public Use
  Company Number: US-ABBOTT-12P-163-0929505-00

PATIENT
  Age: 31 Year
  Sex: Female

DRUGS (4)
  1. HUMIRA 40 MG/0.8 ML PEN [Suspect]
     Indication: ARTHRITIS REACTIVE
     Dates: start: 20111214
  2. SEASONALE [Concomitant]
     Indication: CONTRACEPTION
     Route: 048
  3. VITAMIN D3 [Concomitant]
     Indication: VITAMIN SUPPLEMENTATION
     Dosage: DAILY
     Route: 048
  4. VITAMIN B COMPLEX [Concomitant]
     Indication: FATIGUE
     Route: 048

REACTIONS (1)
  - Injection site bruising [Recovered/Resolved]
